FAERS Safety Report 19154321 (Version 2)
Quarter: 2022Q1

REPORT INFORMATION
  Report Type: Spontaneous
  Country: US (occurrence: US)
  Receive Date: 20210419
  Receipt Date: 20220310
  Transmission Date: 20220423
  Serious: Yes (Other)
  Sender: FDA-Public Use
  Company Number: US-GLAXOSMITHKLINE-US2021GSK087566

PATIENT
  Sex: Male

DRUGS (6)
  1. RANITIDINE [Suspect]
     Active Substance: RANITIDINE
     Indication: Gastrooesophageal reflux disease
     Dosage: 300 MG PRESCRIPTION
     Route: 065
     Dates: start: 200812, end: 201606
  2. RANITIDINE [Suspect]
     Active Substance: RANITIDINE
     Dosage: TWICE DAILY|PRESCRIPTION
     Route: 065
     Dates: start: 200812, end: 201606
  3. RANITIDINE [Suspect]
     Active Substance: RANITIDINE
     Dosage: UNK, QD
     Route: 065
     Dates: start: 200812, end: 201606
  4. RANITIDINE [Suspect]
     Active Substance: RANITIDINE
     Indication: Gastrooesophageal reflux disease
     Dosage: 300 MG PRESCRIPTION
     Route: 065
     Dates: start: 200812, end: 201606
  5. RANITIDINE [Suspect]
     Active Substance: RANITIDINE
     Dosage: TWICE DAILY|PRESCRIPTION
     Route: 065
     Dates: start: 200812, end: 201606
  6. RANITIDINE [Suspect]
     Active Substance: RANITIDINE
     Dosage: UNK, QD
     Route: 065
     Dates: start: 200812, end: 201606

REACTIONS (1)
  - Laryngeal cancer [Unknown]
